FAERS Safety Report 7793051-0 (Version None)
Quarter: 2011Q3

REPORT INFORMATION
  Report Type: 
  Country: None (occurrence: None)
  Receive Date: 20110929
  Receipt Date: 20110915
  Transmission Date: 20111222
  Serious: Yes (Hospitalization, Disabling)
  Sender: FDA-Public Use
  Company Number: 2011AP001846

PATIENT
  Age: 63 Year
  Sex: Female

DRUGS (11)
  1. CALCIUM CARBONATE [Concomitant]
  2. TIOTROPIUM BROMIDE (TIOTROPIUM BROMIDE) [Concomitant]
  3. RABEPRAZOLE SODIUM [Concomitant]
  4. SALMETEROL XINAFOATE (SALMETEROL XINAFOATE) [Concomitant]
  5. CHOLECALCIFEROL (COLECALCIFEROL) [Concomitant]
  6. RAMIPRIL [Concomitant]
  7. AMLODIPINE [Concomitant]
  8. DOXAZOSIN MESYLATE [Concomitant]
  9. VITAMIN D [Concomitant]
  10. FLUTICASONE PROPIONATE [Concomitant]
  11. ALENDRONATE SODIUM [Suspect]
     Indication: OSTEOPOROSIS
     Dosage: 70 MG;  ; PO;QW
     Route: 048
     Dates: start: 20081217, end: 20110804

REACTIONS (4)
  - OSTEONECROSIS OF JAW [None]
  - JAW FRACTURE [None]
  - ORAL DISCHARGE [None]
  - PATHOLOGICAL FRACTURE [None]
